FAERS Safety Report 5383507-2 (Version None)
Quarter: 2007Q3

REPORT INFORMATION
  Report Type: 
  Country: None (occurrence: None)
  Receive Date: 20070706
  Receipt Date: 20070627
  Transmission Date: 20080115
  Serious: Yes (Hospitalization)
  Sender: FDA-Public Use
  Company Number: 013020

PATIENT
  Age: 74 Year
  Sex: Male

DRUGS (4)
  1. PRIALT [Suspect]
     Indication: SPINAL LAMINECTOMY
     Dosage: 0.05 UG, ONCE/HOUR, INTRATHECAL
     Route: 037
     Dates: start: 20070626, end: 20070627
  2. PRIALT [Suspect]
     Indication: TREATMENT FAILURE
     Dosage: 0.05 UG, ONCE/HOUR, INTRATHECAL
     Route: 037
     Dates: start: 20070626, end: 20070627
  3. MORPHINE SULFATE [Concomitant]
  4. OXYCONTIN [Concomitant]

REACTIONS (6)
  - AGGRESSION [None]
  - AMNESIA [None]
  - DISORIENTATION [None]
  - HYPOTENSION [None]
  - URINARY RETENTION [None]
  - VOMITING [None]
